FAERS Safety Report 25331268 (Version 1)
Quarter: 2025Q2

REPORT INFORMATION
  Report Type: Spontaneous
  Country: GB (occurrence: GB)
  Receive Date: 20250519
  Receipt Date: 20250519
  Transmission Date: 20250717
  Serious: Yes (Other)
  Sender: TORRENT PHARMA INC.
  Company Number: None

PATIENT
  Age: 52 Year
  Sex: Female

DRUGS (1)
  1. DIMETHYL FUMARATE [Suspect]
     Active Substance: DIMETHYL FUMARATE
     Indication: Product used for unknown indication
     Route: 065

REACTIONS (5)
  - Pruritus [Not Recovered/Not Resolved]
  - Odynophagia [Not Recovered/Not Resolved]
  - Chest pain [Unknown]
  - Product substitution issue [Unknown]
  - Erythema [Not Recovered/Not Resolved]
